FAERS Safety Report 23890565 (Version 1)
Quarter: 2024Q2

REPORT INFORMATION
  Report Type: Report from Study
  Country: MX (occurrence: MX)
  Receive Date: 20240523
  Receipt Date: 20240523
  Transmission Date: 20240717
  Serious: Yes (Other)
  Sender: FDA-Public Use
  Company Number: MX-JNJFOC-20240554322

PATIENT
  Sex: Female
  Weight: 95 kg

DRUGS (7)
  1. SIMPONI [Suspect]
     Active Substance: GOLIMUMAB
     Indication: Rheumatoid arthritis
     Route: 058
     Dates: start: 202303
  2. LEFLUNOMIDE [Concomitant]
     Active Substance: LEFLUNOMIDE
  3. PREDNISONE [Concomitant]
     Active Substance: PREDNISONE
     Dosage: 1 AND HALF
  4. ETORICOXIB [Concomitant]
     Active Substance: ETORICOXIB
     Indication: Pain
  5. OMEPRAZOLE [Concomitant]
     Active Substance: DONEPEZIL HYDROCHLORIDE\OMEPRAZOLE\OMEPRAZOLE MAGNESIUM
  6. CALCIUM [Concomitant]
     Active Substance: CALCIUM
  7. ERGOCALCIFEROL [Concomitant]
     Active Substance: ERGOCALCIFEROL
     Dosage: 600MG/400

REACTIONS (4)
  - Foot deformity [Unknown]
  - Salivary hyposecretion [Unknown]
  - Synovitis [Unknown]
  - Joint injury [Unknown]
